FAERS Safety Report 20661853 (Version 2)
Quarter: 2022Q2

REPORT INFORMATION
  Report Type: Spontaneous
  Country: JP (occurrence: JP)
  Receive Date: 20220401
  Receipt Date: 20220602
  Transmission Date: 20220721
  Serious: Yes (Other)
  Sender: FDA-Public Use
  Company Number: JP-Eisai-202113524_LEN_P_1

PATIENT
  Age: 72 Year
  Sex: Male

DRUGS (2)
  1. LENVATINIB [Suspect]
     Active Substance: LENVATINIB
     Indication: Papillary thyroid cancer
     Route: 048
  2. LENVATINIB [Suspect]
     Active Substance: LENVATINIB
     Route: 048

REACTIONS (5)
  - Cerebral haemorrhage [Recovered/Resolved]
  - Hypertension [Recovered/Resolved]
  - Myalgia [Recovered/Resolved]
  - Malaise [Recovered/Resolved]
  - Headache [Recovered/Resolved]
